FAERS Safety Report 7956702-3 (Version None)
Quarter: 2011Q4

REPORT INFORMATION
  Report Type: 
  Country: None (occurrence: None)
  Receive Date: 20111205
  Receipt Date: 20111128
  Transmission Date: 20120403
  Serious: Yes (Hospitalization)
  Sender: FDA-Public Use
  Company Number: JP-PFIZER INC-2011270959

PATIENT
  Age: 74 Year
  Sex: Male

DRUGS (1)
  1. VIBRAMYCIN [Suspect]
     Indication: FURUNCLE
     Dosage: 100 MG, DAILY
     Route: 048
     Dates: start: 20110905, end: 20110912

REACTIONS (1)
  - DRUG RASH WITH EOSINOPHILIA AND SYSTEMIC SYMPTOMS [None]
